FAERS Safety Report 11316752 (Version 1)
Quarter: 2015Q3

REPORT INFORMATION
  Report Type: Spontaneous
  Country: US (occurrence: US)
  Receive Date: 20150728
  Receipt Date: 20150728
  Transmission Date: 20151125
  Serious: No
  Sender: FDA-Public Use
  Company Number: US-PFIZER INC-2015247548

PATIENT
  Age: 30 Year
  Sex: Female
  Weight: 68 kg

DRUGS (1)
  1. EFFEXOR XR [Suspect]
     Active Substance: VENLAFAXINE HYDROCHLORIDE
     Indication: BIPOLAR DISORDER
     Dosage: UNK, LOW DOSE
     Dates: start: 2015, end: 201506

REACTIONS (7)
  - Vomiting [Recovered/Resolved]
  - Anxiety [Recovered/Resolved]
  - Malaise [Recovered/Resolved]
  - Weight decreased [Recovered/Resolved]
  - Insomnia [Recovered/Resolved]
  - Abdominal pain upper [Recovered/Resolved]
  - Decreased appetite [Recovered/Resolved]

NARRATIVE: CASE EVENT DATE: 2015
